FAERS Safety Report 12573025 (Version 1)
Quarter: 2016Q3

REPORT INFORMATION
  Report Type: Spontaneous
  Country: US (occurrence: None)
  Receive Date: 20160719
  Receipt Date: 20160719
  Transmission Date: 20161109
  Serious: Yes (Hospitalization)
  Sender: FDA-Public Use
  Company Number: None

PATIENT
  Age: 60 Year
  Sex: Male

DRUGS (1)
  1. AMBISOME [Suspect]
     Active Substance: AMPHOTERICIN B
     Indication: BRONCHOPULMONARY ASPERGILLOSIS
     Dates: start: 20160702, end: 20160711

REACTIONS (7)
  - Diarrhoea [None]
  - Acute kidney injury [None]
  - Product label confusion [None]
  - Nausea [None]
  - Drug dispensing error [None]
  - Vomiting [None]
  - Incorrect product formulation administered [None]

NARRATIVE: CASE EVENT DATE: 20160711
